FAERS Safety Report 16341972 (Version 3)
Quarter: 2019Q4

REPORT INFORMATION
  Report Type: Report from Study
  Country: CA (occurrence: CA)
  Receive Date: 20190522
  Receipt Date: 20191106
  Transmission Date: 20200122
  Serious: Yes (Other)
  Sender: FDA-Public Use
  Company Number: CA-ROCHE-2322815

PATIENT
  Sex: Female

DRUGS (6)
  1. FILGRASTIM [Concomitant]
     Active Substance: FILGRASTIM
     Route: 065
     Dates: start: 20180423, end: 20190801
  2. AVADOMIDE [Suspect]
     Active Substance: AVADOMIDE
     Indication: B-CELL LYMPHOMA
     Dosage: ONCE DAILY AT 2MG OR 3 MG
     Route: 048
     Dates: start: 20170221
  3. AVADOMIDE [Suspect]
     Active Substance: AVADOMIDE
     Dosage: ONCE DAILY AT 2MG OR 3 MG
     Route: 048
     Dates: start: 20190319
  4. RITUXIMAB. [Suspect]
     Active Substance: RITUXIMAB
     Indication: B-CELL LYMPHOMA
     Route: 041
     Dates: start: 20170228
  5. AVADOMIDE [Suspect]
     Active Substance: AVADOMIDE
     Dosage: ONCE DAILY AT 2MG OR 3 MG
     Route: 048
     Dates: start: 20190424
  6. LEVOTHYROXINE. [Concomitant]
     Active Substance: LEVOTHYROXINE
     Route: 065
     Dates: start: 20180221

REACTIONS (2)
  - Squamous cell carcinoma [Recovered/Resolved]
  - Basal cell carcinoma [Recovered/Resolved]

NARRATIVE: CASE EVENT DATE: 201810
